FAERS Safety Report 12625411 (Version 4)
Quarter: 2016Q4

REPORT INFORMATION
  Report Type: Spontaneous
  Country: US (occurrence: US)
  Receive Date: 20160805
  Receipt Date: 20161104
  Transmission Date: 20170207
  Serious: Yes (Other)
  Sender: FDA-Public Use
  Company Number: US-TEVA-681713ACC

PATIENT
  Age: 43 Year
  Sex: Female

DRUGS (1)
  1. PARAGARD T 380A [Suspect]
     Active Substance: COPPER
     Indication: CONTRACEPTION
     Dates: start: 20131107

REACTIONS (5)
  - Device dislocation [Unknown]
  - Complication associated with device [Unknown]
  - Abdominal pain lower [Unknown]
  - Device breakage [Not Recovered/Not Resolved]
  - Embedded device [Unknown]

NARRATIVE: CASE EVENT DATE: 20160714
